FAERS Safety Report 12172470 (Version 1)
Quarter: 2016Q1

REPORT INFORMATION
  Report Type: Report from Study
  Country: HU (occurrence: HU)
  Receive Date: 20160311
  Receipt Date: 20160311
  Transmission Date: 20160526
  Serious: Yes (Hospitalization)
  Sender: FDA-Public Use
  Company Number: HU-BAYER-2016-042833

PATIENT
  Age: 28 Year
  Sex: Female

DRUGS (8)
  1. RINDEX [CACL,GLUCOSE MONOHYDRATE,KCL,MGCL HEXAHYDRATE,NACL] [Concomitant]
  2. MIRENA [Suspect]
     Active Substance: LEVONORGESTREL
     Indication: CONTRACEPTION
     Dosage: 20 MCG/24HR, CONT
     Route: 015
     Dates: start: 20151126, end: 20151204
  3. L THYROXIN [Concomitant]
     Active Substance: LEVOTHYROXINE SODIUM
     Indication: HYPOTHYROIDISM
     Dosage: 25 ?G, TID
     Route: 048
  4. AMOXICILLIN. [Concomitant]
     Active Substance: AMOXICILLIN
     Dosage: 1 G, TID
     Route: 042
  5. PANTOPRAZOLE [Concomitant]
     Active Substance: PANTOPRAZOLE SODIUM
     Dosage: 1 DF, BID
  6. AUGMENTIN [Concomitant]
     Active Substance: AMOXICILLIN\CLAVULANATE POTASSIUM
     Dosage: 2.4 G, TID
     Route: 042
  7. VITAMIN C [Concomitant]
     Active Substance: ASCORBIC ACID
     Dosage: 100 MG, BID
  8. ALGOPYRIN [Concomitant]
     Active Substance: METAMIZOLE SODIUM

REACTIONS (8)
  - Diarrhoea [Recovered/Resolved]
  - Pelvic pain [Recovering/Resolving]
  - Pyrexia [Recovering/Resolving]
  - Toxic shock syndrome [Recovering/Resolving]
  - Musculoskeletal pain [Recovering/Resolving]
  - Sepsis [Recovering/Resolving]
  - Abdominal pain upper [Recovering/Resolving]
  - Pelvic discomfort [Recovering/Resolving]

NARRATIVE: CASE EVENT DATE: 20151203
